FAERS Safety Report 10154715 (Version 2)
Quarter: 2014Q2

REPORT INFORMATION
  Report Type: Spontaneous
  Country: JP (occurrence: JP)
  Receive Date: 20140506
  Receipt Date: 20140610
  Transmission Date: 20141212
  Serious: Yes (Hospitalization, Other)
  Sender: FDA-Public Use
  Company Number: JP-ROCHE-1391460

PATIENT
  Age: 44 Year
  Sex: Female
  Weight: 48 kg

DRUGS (2)
  1. AVASTIN [Suspect]
     Indication: BREAST CANCER METASTATIC
     Dosage: LAST DOSE PRIOR TO SERIOUS ADVERSE EVENT: 20/MAR/2014
     Route: 041
     Dates: start: 20131010
  2. PACLITAXEL [Concomitant]
     Indication: BREAST CANCER METASTATIC
     Route: 041
     Dates: start: 20131010, end: 20140206

REACTIONS (2)
  - Device occlusion [Recovering/Resolving]
  - Thrombosis in device [Unknown]
